FAERS Safety Report 13713815 (Version 1)
Quarter: 2017Q3

REPORT INFORMATION
  Report Type: Spontaneous
  Country: DE (occurrence: DE)
  Receive Date: 20170704
  Receipt Date: 20170704
  Transmission Date: 20171127
  Serious: Yes (Hospitalization, Other)
  Sender: FDA-Public Use
  Company Number: DE-HETERO LABS LTD-2022868

PATIENT
  Age: 1 Day
  Sex: Female
  Weight: 2.87 kg

DRUGS (2)
  1. CYANOCOBALAMIN, FOLIC ACID [Concomitant]
     Route: 064
  2. ESCITALOPRAM [Suspect]
     Active Substance: ESCITALOPRAM OXALATE
     Indication: DEPRESSION
     Route: 064
     Dates: start: 20160124, end: 20161103

REACTIONS (3)
  - Neonatal asphyxia [Recovered/Resolved]
  - Neonatal hypoxia [Recovered/Resolved]
  - Small for dates baby [Unknown]
